FAERS Safety Report 7458055-6 (Version None)
Quarter: 2011Q2

REPORT INFORMATION
  Report Type: 
  Country: None (occurrence: None)
  Receive Date: 20110504
  Receipt Date: 20110426
  Transmission Date: 20111010
  Serious: Yes (Life-Threatening, Hospitalization, Disabling)
  Sender: FDA-Public Use
  Company Number: US-PFIZER INC-2011089834

PATIENT
  Sex: Male
  Weight: 114 kg

DRUGS (4)
  1. AZITHROMYCIN [Suspect]
     Route: 042
  2. LEVAQUIN [Suspect]
     Route: 042
  3. VANCOMYCIN HCL [Suspect]
     Dosage: UNK MG, UNK
     Route: 042
  4. FEBUXOSTAT [Suspect]
     Indication: GOUT
     Dosage: 80 MG, 1X/DAY
     Route: 048
     Dates: start: 20100223, end: 20100306

REACTIONS (17)
  - RASH GENERALISED [None]
  - UNRESPONSIVE TO STIMULI [None]
  - MYOCLONUS [None]
  - NAUSEA [None]
  - ASTHENIA [None]
  - RESPIRATORY FAILURE [None]
  - SOMNOLENCE [None]
  - ENCEPHALITIS VIRAL [None]
  - RHABDOMYOLYSIS [None]
  - MUSCULAR WEAKNESS [None]
  - VOMITING [None]
  - PYREXIA [None]
  - VASCULITIS [None]
  - DRUG ERUPTION [None]
  - LOSS OF CONSCIOUSNESS [None]
  - PNEUMONIA [None]
  - FATIGUE [None]
